FAERS Safety Report 5062924-4 (Version None)
Quarter: 2006Q3

REPORT INFORMATION
  Report Type: 
  Country: None (occurrence: None)
  Receive Date: 20060724
  Receipt Date: 20060710
  Transmission Date: 20061208
  Serious: Yes (Death, Other)
  Sender: FDA-Public Use
  Company Number: MC200600450

PATIENT
  Age: 37 Year
  Sex: Male

DRUGS (3)
  1. ANGIOMAX [Suspect]
     Dosage: 111.1 ML, INTRAVENOUS
     Route: 042
     Dates: start: 20060326, end: 20060326
  2. LOVENOX [Concomitant]
  3. GARDENAL ^AVENTIS^ (PHENOBARBITAL) [Concomitant]

REACTIONS (2)
  - CONVULSION [None]
  - RESPIRATORY DISTRESS [None]
